FAERS Safety Report 8991265 (Version 1)
Quarter: 2012Q4

REPORT INFORMATION
  Report Type: Report from Study
  Country: CA (occurrence: CA)
  Receive Date: 20121231
  Receipt Date: 20121231
  Transmission Date: 20130627
  Serious: Yes (Hospitalization, Other)
  Sender: FDA-Public Use
  Company Number: CA-ROCHE-1173678

PATIENT
  Age: 50 Year
  Sex: Female

DRUGS (4)
  1. OMALIZUMAB [Suspect]
     Indication: ASTHMA
     Route: 058
     Dates: start: 20090513
  2. OMALIZUMAB [Suspect]
     Route: 058
     Dates: start: 20110913
  3. ADVAIR [Concomitant]
     Route: 065
  4. SYMBICORT [Concomitant]

REACTIONS (26)
  - Increased bronchial secretion [Unknown]
  - Wheezing [Unknown]
  - Dyspnoea [Unknown]
  - Choking [Unknown]
  - Asthma [Unknown]
  - Type 2 diabetes mellitus [Unknown]
  - Pyrexia [Unknown]
  - Vomiting [Unknown]
  - Nasopharyngitis [Unknown]
  - Diarrhoea [Unknown]
  - Nausea [Unknown]
  - Cough [Unknown]
  - Abdominal distension [Unknown]
  - Blood pressure fluctuation [Unknown]
  - Asthenia [Unknown]
  - Nasal congestion [Unknown]
  - Malaise [Unknown]
  - Hypoventilation [Unknown]
  - Sinus congestion [Unknown]
  - Respiratory tract congestion [Unknown]
  - Pulmonary congestion [Recovering/Resolving]
  - Nocturnal dyspnoea [Unknown]
  - Upper-airway cough syndrome [Unknown]
  - Productive cough [Unknown]
  - Fatigue [Unknown]
  - Headache [Unknown]
